FAERS Safety Report 9098050 (Version 1)
Quarter: 2013Q1

REPORT INFORMATION
  Report Type: Report from Study
  Country: JP (occurrence: JP)
  Receive Date: 20130213
  Receipt Date: 20130213
  Transmission Date: 20140127
  Serious: Yes (Life-Threatening, Disabling)
  Sender: FDA-Public Use
  Company Number: JP-009507513-1208JPN007266

PATIENT
  Age: 24 Year
  Sex: Male

DRUGS (21)
  1. STOCRIN TABS [Suspect]
     Indication: HIV INFECTION
     Dosage: 600 MG, QD, DIVIDED DOSE FREQUENCY U
     Route: 048
     Dates: start: 20000724, end: 20000725
  2. STOCRIN TABS [Suspect]
     Dosage: 600 MG, QD, DIVIDED DOSE FREQUENCY U
     Route: 048
     Dates: start: 20000925, end: 20001002
  3. CRIXIVAN [Suspect]
     Indication: HIV INFECTION
     Dosage: 800, MG, QD, DIVIDED DOSE FREQUENCY U
     Route: 048
     Dates: start: 20000318, end: 20000524
  4. VIDEX [Suspect]
     Indication: HIV INFECTION
     Dosage: 125 MG, BID
     Route: 048
     Dates: start: 19941219, end: 19970307
  5. VIDEX [Suspect]
     Dosage: 300 MG, QD, DIVIDED DOSE FREQUENCY U
     Route: 048
     Dates: start: 19970307, end: 20010721
  6. VIDEX EC [Suspect]
     Indication: HIV INFECTION
     Dosage: 400 MG, QD, DIVIDED DOSE FREQUENCY U
     Route: 048
     Dates: start: 20010721, end: 20040514
  7. NORVIR [Suspect]
     Indication: HIV INFECTION
     Dosage: 400 MG, BID
     Route: 048
     Dates: start: 19990619, end: 19991031
  8. NORVIR [Suspect]
     Dosage: 200 MG, QD, DIVIDED DOSE FREQUENCY U
     Route: 048
     Dates: start: 20110618
  9. INVIRASE [Suspect]
     Indication: HIV INFECTION
     Dosage: 400 MG, BID
     Route: 048
     Dates: start: 19990619, end: 20000318
  10. INVIRASE [Suspect]
     Dosage: 800, MG, QD, DIVIDED DOSE FREQUENCY U
     Route: 048
     Dates: start: 20000524, end: 20001224
  11. ZIAGEN [Suspect]
     Indication: HIV INFECTION
     Dosage: 600 MG, QD, DIVIDED DOSE FREQUENCY U
     Route: 048
     Dates: start: 20000724, end: 20000725
  12. ZIAGEN [Suspect]
     Dosage: 600 MG, QD, DIVIDED DOSE FREQUENCY U
     Route: 048
     Dates: start: 20011020, end: 20011027
  13. ZERIT [Suspect]
     Indication: HIV INFECTION
     Dosage: 30 MG, BID
     Route: 048
     Dates: start: 19970825, end: 19980227
  14. ZERIT [Suspect]
     Dosage: 40 MG, BID
     Route: 048
     Dates: start: 19980227, end: 19980803
  15. ZERIT [Suspect]
     Dosage: 30 MG, BID
     Route: 048
     Dates: start: 19980803, end: 19981109
  16. ZERIT [Suspect]
     Dosage: 40 MG, BID
     Route: 048
     Dates: start: 19981109, end: 19990619
  17. ZERIT [Suspect]
     Dosage: 80 MG, QD, DIVIDED DOSE FREQUENCY U
     Route: 048
     Dates: start: 20001225, end: 20011020
  18. KALETRA [Suspect]
     Indication: HIV INFECTION
     Dosage: 6 DF, QD, DIVIDED DOSE FREQUENCY U
     Route: 048
     Dates: start: 20001225, end: 20040424
  19. EPIVIR [Suspect]
     Indication: HIV INFECTION
     Dosage: 300 MG, QD
     Route: 048
     Dates: start: 20040515, end: 20080919
  20. [THERAPY UNSPECIFIED] [Concomitant]
     Indication: HAEMARTHROSIS
     Dosage: 9-10 TIMES/MONTH
     Route: 042
     Dates: start: 19991101
  21. ANTIHEMOPHILIC FACTOR (AS DRUG) [Concomitant]
     Dosage: UNK
     Dates: start: 19970825

REACTIONS (7)
  - Pulmonary hypertension [Not Recovered/Not Resolved]
  - Palpitations [Recovering/Resolving]
  - Dizziness [Recovering/Resolving]
  - Dizziness [None]
  - Alanine aminotransferase increased [None]
  - Aspartate aminotransferase increased [None]
  - Fibrin degradation products increased [None]
